FAERS Safety Report 10187976 (Version 1)
Quarter: 2014Q2

REPORT INFORMATION
  Report Type: Spontaneous
  Country: US (occurrence: US)
  Receive Date: 20140522
  Receipt Date: 20140522
  Transmission Date: 20141212
  Serious: No
  Sender: FDA-Public Use
  Company Number: US-SA-2013SA096379

PATIENT
  Age: 56 Year
  Sex: Male

DRUGS (2)
  1. LANTUS [Suspect]
     Dosage: DOSE:200 UNIT(S)
     Route: 051
     Dates: start: 2008
  2. LANTUS [Suspect]
     Dosage: DOSE:300 UNIT(S)
     Route: 051

REACTIONS (1)
  - Insulin resistance [Unknown]
